FAERS Safety Report 6649031-1 (Version None)
Quarter: 2010Q1

REPORT INFORMATION
  Report Type: 
  Country: None (occurrence: None)
  Receive Date: 20100309
  Receipt Date: 20091221
  Transmission Date: 20100710
  Serious: No
  Sender: FDA-Public Use
  Company Number: 2009SP042856

PATIENT
  Age: 64 Year
  Sex: Female

DRUGS (1)
  1. SAPHRIS [Suspect]
     Indication: DEPRESSION
     Dosage: 10 MG ; SL
     Route: 060

REACTIONS (4)
  - LOGORRHOEA [None]
  - MEDICATION ERROR [None]
  - NAUSEA [None]
  - VOMITING [None]
